FAERS Safety Report 4831423-4 (Version None)
Quarter: 2005Q4

REPORT INFORMATION
  Report Type: 
  Country: None (occurrence: None)
  Receive Date: 20051116
  Receipt Date: 20051116
  Transmission Date: 20060501
  Serious: No
  Sender: FDA-Public Use
  Company Number: None

PATIENT
  Sex: Male
  Weight: 158.2 kg

DRUGS (5)
  1. ZOSYN [Suspect]
     Indication: ABSCESS LIMB
     Dosage: 3.375 GM EVERY 6 'HOURS IV BOLUS
     Route: 040
     Dates: start: 20051027, end: 20051111
  2. ZOSYN [Suspect]
     Indication: CELLULITIS
     Dosage: 3.375 GM EVERY 6 'HOURS IV BOLUS
     Route: 040
     Dates: start: 20051027, end: 20051111
  3. VANCOMYCIN [Concomitant]
  4. ASPIRIN [Concomitant]
  5. VICODIN [Concomitant]

REACTIONS (2)
  - NEUTROPHIL COUNT DECREASED [None]
  - WHITE BLOOD CELL COUNT DECREASED [None]
